FAERS Safety Report 5921194-2 (Version None)
Quarter: 2008Q4

REPORT INFORMATION
  Report Type: 
  Country: None (occurrence: None)
  Receive Date: 20081016
  Receipt Date: 20081009
  Transmission Date: 20090506
  Serious: Yes (Hospitalization)
  Sender: FDA-Public Use
  Company Number: US-B.I. PHARMACEUTICALS,INC./RIDGEFIELD-2008-BP-12662BP

PATIENT
  Age: 87 Year
  Sex: Female

DRUGS (4)
  1. AGGRENOX [Suspect]
     Indication: CEREBROVASCULAR DISORDER
     Dates: start: 20080619, end: 20080620
  2. SPIRIVA [Concomitant]
     Dosage: 18MCG
  3. EVISTA [Concomitant]
     Dosage: 60MG
  4. FELODIPINE [Concomitant]
     Dosage: 5MG

REACTIONS (1)
  - CHEST PAIN [None]
